FAERS Safety Report 8546526-0 (Version None)
Quarter: 2012Q3

REPORT INFORMATION
  Report Type: 
  Country: None (occurrence: None)
  Receive Date: 20120727
  Receipt Date: 20120723
  Transmission Date: 20120928
  Serious: No
  Sender: FDA-Public Use
  Company Number: US-009507513-1207USA010232

PATIENT

DRUGS (5)
  1. HUMALOG [Suspect]
     Dosage: 30 IU, TID
  2. LYRICA [Suspect]
     Dosage: 75 MG, PRN
  3. METFORMIN HYDROCHLORIDE [Suspect]
     Dosage: 1000 MG, BID
  4. LANTUS [Suspect]
     Dosage: 52 IU, BID
  5. JANUVIA [Suspect]
     Dosage: 100 MG, QD
     Route: 048

REACTIONS (2)
  - MUSCULOSKELETAL PAIN [None]
  - DRUG INEFFECTIVE [None]
